FAERS Safety Report 24632758 (Version 1)
Quarter: 2024Q4

REPORT INFORMATION
  Report Type: Spontaneous
  Country: US (occurrence: US)
  Receive Date: 20241118
  Receipt Date: 20241118
  Transmission Date: 20250115
  Serious: No
  Sender: PERRIGO
  Company Number: US-PERRIGO-24US005709

PATIENT
  Age: 24 Year
  Sex: Female
  Weight: 77.098 kg

DRUGS (4)
  1. OPILL [Suspect]
     Active Substance: NORGESTREL
     Indication: Mood swings
     Dosage: 0.075 MG, QD
     Route: 048
     Dates: start: 202403
  2. OPILL [Suspect]
     Active Substance: NORGESTREL
     Indication: Menstrual cycle management
  3. LEXAPRO [Concomitant]
     Active Substance: ESCITALOPRAM OXALATE
     Indication: Mental disorder
     Dosage: UNKNOWN, UNKNOWN
     Route: 065
     Dates: start: 202401
  4. LAMOTRIGINE [Concomitant]
     Active Substance: LAMOTRIGINE
     Indication: Mental disorder
     Dosage: UNKNOWN, UNKNOWN
     Route: 065
     Dates: start: 202401

REACTIONS (5)
  - Polymenorrhoea [Not Recovered/Not Resolved]
  - Heavy menstrual bleeding [Not Recovered/Not Resolved]
  - Migraine [Recovered/Resolved]
  - Product use in unapproved indication [Unknown]
  - Product dose omission issue [Unknown]

NARRATIVE: CASE EVENT DATE: 20240301
